FAERS Safety Report 6406418-X (Version None)
Quarter: 2009Q4

REPORT INFORMATION
  Report Type: 
  Country: None (occurrence: None)
  Receive Date: 20091019
  Receipt Date: 20091007
  Transmission Date: 20100525
  Serious: Yes (Hospitalization)
  Sender: FDA-Public Use
  Company Number: FR-JNJCH-2009026933

PATIENT
  Age: 40 Year
  Sex: Male

DRUGS (2)
  1. MINOXIDIL [Suspect]
     Indication: ALOPECIA
     Dosage: TEXT:2 APPLICATIONS DAILY
     Route: 061
  2. REGAINE UNSPECIFIED [Suspect]
     Indication: ALOPECIA
     Dosage: TEXT:2 APPLICATIONS DAILY
     Route: 061

REACTIONS (12)
  - ARTHRALGIA [None]
  - ASTHENIA [None]
  - BLOOD FIBRINOGEN INCREASED [None]
  - DECREASED APPETITE [None]
  - GENERAL PHYSICAL HEALTH DETERIORATION [None]
  - IMPAIRED WORK ABILITY [None]
  - LEUKOCYTOSIS [None]
  - MYALGIA [None]
  - PYREXIA [None]
  - RED BLOOD CELL SEDIMENTATION RATE INCREASED [None]
  - RETINAL DISORDER [None]
  - TRANSAMINASES INCREASED [None]
